FAERS Safety Report 7015482-9 (Version None)
Quarter: 2010Q3

REPORT INFORMATION
  Report Type: 
  Country: None (occurrence: None)
  Receive Date: 20100927
  Receipt Date: 20100917
  Transmission Date: 20110219
  Serious: Yes (Hospitalization, Other)
  Sender: FDA-Public Use
  Company Number: GB-ASTRAZENECA-2010SE43996

PATIENT
  Age: 28 Year
  Sex: Female
  Weight: 47.5 kg

DRUGS (8)
  1. OMEPRAZOLE [Suspect]
     Indication: ABDOMINAL PAIN UPPER
     Route: 048
     Dates: start: 20100722, end: 20100726
  2. OMEPRAZOLE [Suspect]
     Indication: VOMITING
     Route: 048
     Dates: start: 20100722, end: 20100726
  3. BUDESONIDE [Concomitant]
     Indication: ASTHMA
     Route: 055
     Dates: start: 20080301
  4. DOMPERIDONE [Concomitant]
     Indication: ABDOMINAL PAIN
     Route: 048
     Dates: start: 20100721, end: 20100726
  5. DOMPERIDONE [Concomitant]
     Indication: VOMITING
     Route: 048
     Dates: start: 20100721, end: 20100726
  6. SALBUTAMOL [Concomitant]
     Indication: ASTHMA
     Route: 055
     Dates: start: 20020101
  7. TEMAZEPAM [Concomitant]
     Indication: INSOMNIA
     Route: 048
     Dates: start: 20100721, end: 20100726
  8. TEMAZEPAM [Concomitant]
     Indication: STRESS
     Route: 048
     Dates: start: 20100721, end: 20100726

REACTIONS (6)
  - ABDOMINAL PAIN [None]
  - HAEMATEMESIS [None]
  - HEPATITIS ACUTE [None]
  - LIVER FUNCTION TEST ABNORMAL [None]
  - VOMITING [None]
  - WEIGHT INCREASED [None]
